FAERS Safety Report 18433377 (Version 2)
Quarter: 2020Q4

REPORT INFORMATION
  Report Type: Report from Study
  Country: None (occurrence: US)
  Receive Date: 20201028
  Receipt Date: 20201203
  Transmission Date: 20210114
  Serious: Yes (Other)
  Sender: FDA-Public Use
  Company Number: US-ABBVIE-20K-163-3619268-00

PATIENT
  Sex: Male

DRUGS (11)
  1. ACYCLOVIR. [Concomitant]
     Active Substance: ACYCLOVIR
     Indication: NEOPLASM MALIGNANT
  2. POTASSIUM CHLORIDE. [Concomitant]
     Active Substance: POTASSIUM CHLORIDE
     Indication: RENAL DISORDER
  3. DEXAMETHASONE. [Concomitant]
     Active Substance: DEXAMETHASONE
     Indication: NEOPLASM MALIGNANT
  4. VENCLEXTA [Suspect]
     Active Substance: VENETOCLAX
     Indication: PRIMARY AMYLOIDOSIS
     Route: 048
     Dates: start: 202002, end: 2020
  5. ROSUVASTATIN. [Concomitant]
     Active Substance: ROSUVASTATIN
     Indication: BLOOD CHOLESTEROL
  6. FUROSEMIDE. [Concomitant]
     Active Substance: FUROSEMIDE
     Indication: URINE ANALYSIS
  7. HYDRALAZINE [Concomitant]
     Active Substance: HYDRALAZINE HYDROCHLORIDE
     Indication: BLOOD PRESSURE MEASUREMENT
  8. VENCLEXTA [Suspect]
     Active Substance: VENETOCLAX
     Indication: RENAL CANCER
     Route: 048
     Dates: start: 2020
  9. SULFASALAZINE. [Concomitant]
     Active Substance: SULFASALAZINE
     Indication: ARTHRITIS
  10. METOLAZONE. [Concomitant]
     Active Substance: METOLAZONE
     Indication: URINE ANALYSIS
  11. AURYXIA [Concomitant]
     Active Substance: TETRAFERRIC TRICITRATE DECAHYDRATE
     Indication: RENAL DISORDER

REACTIONS (2)
  - Off label use [Unknown]
  - Dialysis [Unknown]
